FAERS Safety Report 10014626 (Version 1)
Quarter: 2014Q1

REPORT INFORMATION
  Report Type: Report from Study
  Country: US (occurrence: US)
  Receive Date: 20140317
  Receipt Date: 20140317
  Transmission Date: 20141002
  Serious: Yes (Other)
  Sender: FDA-Public Use
  Company Number: US-ABBVIE-14P-163-1211265-00

PATIENT
  Sex: Male

DRUGS (1)
  1. ANDROGEL STICK PACK 2.5G [Suspect]
     Indication: TESTICULAR FAILURE
     Dates: start: 201308

REACTIONS (1)
  - Bladder neoplasm [Unknown]
